FAERS Safety Report 12703365 (Version 1)
Quarter: 2016Q3

REPORT INFORMATION
  Report Type: Spontaneous
  Country: PL (occurrence: PL)
  Receive Date: 20160831
  Receipt Date: 20160831
  Transmission Date: 20161109
  Serious: Yes (Hospitalization, Other)
  Sender: FDA-Public Use
  Company Number: PL-BAYER-2016-166067

PATIENT
  Age: 43 Year
  Sex: Female
  Weight: 74 kg

DRUGS (4)
  1. MIRENA [Suspect]
     Active Substance: LEVONORGESTREL
     Dosage: 20 MCG/24HR, CONT
     Route: 015
     Dates: start: 20160707, end: 2016
  2. EXACYL [Concomitant]
     Active Substance: TRANEXAMIC ACID
     Dosage: UNK
     Route: 048
  3. ATROPINA [Concomitant]
     Dosage: UNK
     Route: 058
  4. CYCLONAMINE [Concomitant]
     Active Substance: ETHAMSYLATE

REACTIONS (3)
  - Genital haemorrhage [None]
  - Device expulsion [None]
  - Uterine dilation and curettage [None]

NARRATIVE: CASE EVENT DATE: 2016
